FAERS Safety Report 7020256-9 (Version None)
Quarter: 2010Q3

REPORT INFORMATION
  Report Type: 
  Country: None (occurrence: None)
  Receive Date: 20100924
  Receipt Date: 20100910
  Transmission Date: 20110219
  Serious: Yes (Hospitalization)
  Sender: FDA-Public Use
  Company Number: 0213594

PATIENT
  Age: 51 Year
  Sex: Female

DRUGS (1)
  1. TACHOSIL [Suspect]
     Indication: PANCREATECTOMY

REACTIONS (5)
  - ESCHERICHIA INFECTION [None]
  - INFLAMMATION [None]
  - PANCREATIC FISTULA [None]
  - PURULENT DISCHARGE [None]
  - PYREXIA [None]
